FAERS Safety Report 4481294-3 (Version None)
Quarter: 2004Q4

REPORT INFORMATION
  Report Type: 
  Country: None (occurrence: None)
  Receive Date: 20040923
  Receipt Date: 20040715
  Transmission Date: 20050328
  Serious: No
  Sender: FDA-Public Use
  Company Number: USA030639081

PATIENT
  Age: 61 Year
  Sex: Female

DRUGS (5)
  1. FORTEO [Suspect]
     Indication: OSTEOPOROSIS
     Dosage: 20 UG/L DAY
     Dates: start: 20030609
  2. NEURONTIN [Concomitant]
  3. ALPRAZOLAM [Concomitant]
  4. AMITRIPTYLINE HCL [Concomitant]
  5. MORPHINE [Concomitant]

REACTIONS (2)
  - INJECTION SITE PAIN [None]
  - URTICARIA [None]
